FAERS Safety Report 6260668-4 (Version None)
Quarter: 2009Q3

REPORT INFORMATION
  Report Type: 
  Country: None (occurrence: None)
  Receive Date: 20090706
  Receipt Date: 20090624
  Transmission Date: 20100115
  Serious: Yes (Hospitalization, Other)
  Sender: FDA-Public Use
  Company Number: GXKR2009GB07312

PATIENT
  Age: 35 Year
  Sex: Male

DRUGS (2)
  1. ONDANSETRON [Suspect]
     Indication: NAUSEA
     Dosage: 8 MG, BID, INTRAVENOUS
     Route: 042
  2. CHEMOTHERAPEUTICS NOS (NO INGREDIENTS/SUBSTANCES) [Concomitant]

REACTIONS (5)
  - BONE MARROW FAILURE [None]
  - FEBRILE NEUTROPENIA [None]
  - JAUNDICE [None]
  - NAUSEA [None]
  - VOMITING [None]
